FAERS Safety Report 13517852 (Version 1)
Quarter: 2017Q2

REPORT INFORMATION
  Report Type: Spontaneous
  Country: JP (occurrence: JP)
  Receive Date: 20170505
  Receipt Date: 20170505
  Transmission Date: 20170830
  Serious: Yes (Hospitalization)
  Sender: FDA-Public Use
  Company Number: JP-IPSEN BIOPHARMACEUTICALS, INC.-2017-02987

PATIENT
  Age: 80 Year
  Sex: Female
  Weight: 52 kg

DRUGS (4)
  1. SOMATULINE 90MG [Suspect]
     Active Substance: LANREOTIDE ACETATE
     Indication: ACROMEGALY
     Dosage: 90 MG
     Route: 058
     Dates: start: 20151009, end: 20170124
  2. INSULIN DEGLUDEC [Suspect]
     Active Substance: INSULIN DEGLUDEC
     Indication: DIABETES MELLITUS
  3. INSULIN ASPART [Suspect]
     Active Substance: INSULIN ASPART
     Indication: DIABETES MELLITUS
     Dosage: 10-14 UNITS BEFORE MEALS
  4. INSULIN ASPART [Suspect]
     Active Substance: INSULIN ASPART
     Dosage: 4 UNITS BEFORE EACH MEAL

REACTIONS (4)
  - Hypoglycaemia [Recovering/Resolving]
  - Fracture [Unknown]
  - Inappropriate schedule of drug administration [Unknown]
  - Blood glucose increased [Unknown]

NARRATIVE: CASE EVENT DATE: 20151009
